FAERS Safety Report 14681862 (Version 7)
Quarter: 2018Q4

REPORT INFORMATION
  Report Type: Spontaneous
  Country: JP (occurrence: JP)
  Receive Date: 20180326
  Receipt Date: 20181102
  Transmission Date: 20190204
  Serious: Yes (Other)
  Sender: FDA-Public Use
  Company Number: JP-PFIZER INC-2018114926

PATIENT
  Age: 77 Year
  Sex: Female

DRUGS (10)
  1. ERYTHROSINE [Suspect]
     Active Substance: FD+C RED NO. 3
  2. FEMARA [Concomitant]
     Active Substance: LETROZOLE
     Dosage: 2.5 MG, DAILY
     Route: 048
  3. MEDICON [Suspect]
     Active Substance: DEXTROMETHORPHAN HYDROBROMIDE
  4. IBRANCE [Suspect]
     Active Substance: PALBOCICLIB
     Dosage: 100 MG, ONCE A DAY
     Route: 048
     Dates: start: 20180309, end: 20180314
  5. TRICHLORMETHIAZIDE [Suspect]
     Active Substance: TRICHLORMETHIAZIDE
  6. AMBROXOL [Suspect]
     Active Substance: AMBROXOL
  7. RISPERIDONE. [Suspect]
     Active Substance: RISPERIDONE
  8. AMLODIPINE BESILATE [Suspect]
     Active Substance: AMLODIPINE BESYLATE
  9. REMINYL [Suspect]
     Active Substance: GALANTAMINE
  10. CARBOCYSTEINE [Suspect]
     Active Substance: CARBOCYSTEINE

REACTIONS (3)
  - Renal impairment [Recovering/Resolving]
  - Blood creatinine increased [Recovering/Resolving]
  - Glomerular filtration rate decreased [Recovering/Resolving]

NARRATIVE: CASE EVENT DATE: 20180314
